FAERS Safety Report 25494736 (Version 2)
Quarter: 2025Q3

REPORT INFORMATION
  Report Type: Spontaneous
  Country: CR (occurrence: CR)
  Receive Date: 20250630
  Receipt Date: 20250710
  Transmission Date: 20251021
  Serious: Yes (Hospitalization)
  Sender: SANDOZ
  Company Number: CR-002147023-NVSC2024CR231800

PATIENT
  Sex: Female
  Weight: 76 kg

DRUGS (2)
  1. FULVESTRANT [Suspect]
     Active Substance: FULVESTRANT
     Indication: Product used for unknown indication
     Dosage: 5 CC / 2.5 AND 2.5, QMO ROUTE: IN EACH  BUTTOCK
     Route: 065
     Dates: start: 20230510
  2. KISQALI [Suspect]
     Active Substance: RIBOCICLIB SUCCINATE
     Indication: Breast cancer metastatic
     Dosage: 600 MG, QD
     Route: 048
     Dates: start: 20230109

REACTIONS (22)
  - General physical health deterioration [Unknown]
  - Taste disorder [Unknown]
  - Craniofacial fracture [Unknown]
  - Nasopharyngitis [Unknown]
  - Dyspnoea [Unknown]
  - Decreased appetite [Unknown]
  - Discomfort [Unknown]
  - Drug intolerance [Unknown]
  - Feeling abnormal [Unknown]
  - Ear pain [Unknown]
  - Malaise [Unknown]
  - Ear infection [Unknown]
  - Fall [Unknown]
  - Abdominal discomfort [Unknown]
  - Depressed mood [Unknown]
  - Nasal injury [Unknown]
  - Face injury [Unknown]
  - Blood glucose decreased [Unknown]
  - Lung disorder [Unknown]
  - Diabetes mellitus [Unknown]
  - Pruritus [Unknown]
  - Hypersensitivity [Unknown]

NARRATIVE: CASE EVENT DATE: 20240101
